FAERS Safety Report 25113667 (Version 1)
Quarter: 2025Q1

REPORT INFORMATION
  Report Type: Spontaneous
  Country: US (occurrence: None)
  Receive Date: 20250322
  Receipt Date: 20250322
  Transmission Date: 20250409
  Serious: Yes (unspecified)
  Sender: FDA-CTU
  Company Number: None

PATIENT
  Age: 82 Year
  Sex: Female

DRUGS (2)
  1. LENALIDOMIDE [Suspect]
     Active Substance: LENALIDOMIDE
     Indication: Myelodysplastic syndrome
     Dates: start: 20240923
  2. LENALIDOMIDE [Concomitant]
     Active Substance: LENALIDOMIDE
     Dates: start: 20240922

REACTIONS (1)
  - Rash [None]

NARRATIVE: CASE EVENT DATE: 20250322
